FAERS Safety Report 12774982 (Version 1)
Quarter: 2016Q3

REPORT INFORMATION
  Report Type: Spontaneous
  Country: DE (occurrence: DE)
  Receive Date: 20160923
  Receipt Date: 20160923
  Transmission Date: 20161109
  Serious: Yes (Other)
  Sender: FDA-Public Use
  Company Number: DE-GALDERMA-DE16006218

PATIENT
  Age: 61 Year
  Sex: Female

DRUGS (1)
  1. ORAYCEA [Suspect]
     Active Substance: DOXYCYCLINE
     Indication: ROSACEA
     Dates: end: 20160904

REACTIONS (8)
  - Vitreous detachment [Not Recovered/Not Resolved]
  - Dermatitis [Not Recovered/Not Resolved]
  - Muscle twitching [Not Recovered/Not Resolved]
  - Condition aggravated [Not Recovered/Not Resolved]
  - Diarrhoea [Recovering/Resolving]
  - Nail injury [Not Recovered/Not Resolved]
  - Paraesthesia [Not Recovered/Not Resolved]
  - Photopsia [Not Recovered/Not Resolved]
